FAERS Safety Report 16551261 (Version 3)
Quarter: 2019Q3

REPORT INFORMATION
  Report Type: Spontaneous
  Country: IT (occurrence: IT)
  Receive Date: 20190710
  Receipt Date: 20190806
  Transmission Date: 20191004
  Serious: Yes (Life-Threatening, Other)
  Sender: FDA-Public Use
  Company Number: IT-AUROBINDO-AUR-APL-2019-037733

PATIENT

DRUGS (1)
  1. MEROPENEM AUROBINDO1000 MG POWDER FOR SOLUTION FORINJECTION ORINFUSION [Suspect]
     Active Substance: MEROPENEM
     Indication: PNEUMONITIS
     Dosage: 1 GRAM, ONCE A DAY
     Route: 042
     Dates: start: 20190609, end: 20190609

REACTIONS (1)
  - Anaphylactic shock [Recovered/Resolved]

NARRATIVE: CASE EVENT DATE: 20190609
